FAERS Safety Report 4278918-2 (Version None)
Quarter: 2004Q1

REPORT INFORMATION
  Report Type: 
  Country: None (occurrence: None)
  Receive Date: 20040122
  Receipt Date: 20040106
  Transmission Date: 20041129
  Serious: Yes (Hospitalization)
  Sender: FDA-Public Use
  Company Number: B0318456A

PATIENT
  Age: 30 Year
  Sex: Male

DRUGS (1)
  1. WELLBUTRIN SR [Suspect]
     Dosage: ORAL
     Route: 048

REACTIONS (7)
  - AGITATION [None]
  - CHOREOATHETOSIS [None]
  - CONVULSION [None]
  - ELECTROCARDIOGRAM QRS COMPLEX PROLONGED [None]
  - OVERDOSE [None]
  - TACHYCARDIA [None]
  - URINARY INCONTINENCE [None]
